FAERS Safety Report 8560735-6 (Version None)
Quarter: 2012Q2

REPORT INFORMATION
  Report Type: 
  Country: None (occurrence: None)
  Receive Date: 20120418
  Receipt Date: 20090701
  Transmission Date: 20120825
  Serious: Yes (Other)
  Sender: FDA-Public Use
  Company Number: PHEH2009US07030

PATIENT
  Sex: Male

DRUGS (3)
  1. ENABLEX [Suspect]
     Dosage: 7.5 MG
  2. ASPIRIN [Concomitant]
  3. LIPTIOR (ATORVASTATIN CALCIUM) [Concomitant]

REACTIONS (3)
  - URINARY RETENTION [None]
  - IMPAIRED GASTRIC EMPTYING [None]
  - POLLAKIURIA [None]
